FAERS Safety Report 5060317-7 (Version None)
Quarter: 2006Q3

REPORT INFORMATION
  Report Type: 
  Country: None (occurrence: None)
  Receive Date: 20060718
  Receipt Date: 20060703
  Transmission Date: 20061208
  Serious: Yes (Other)
  Sender: FDA-Public Use
  Company Number: PHBS2006US09897

PATIENT
  Age: 61 Year
  Sex: Female

DRUGS (6)
  1. CYCLOSPORINE [Suspect]
     Indication: STEM CELL TRANSPLANT
     Dosage: 3 MG/KG/D, INTRAVENOUS
     Route: 042
  2. CYCLOSPORINE [Suspect]
     Indication: STEM CELL TRANSPLANT
     Dosage: TARGET TROUGH  LEVELS 200-300 MG/DL, ORAL
     Route: 048
  3. PREDNISONE [Suspect]
     Indication: STEM CELL TRANSPLANT
  4. GLUCOCORTICOSTEROIDS (NO INGREDIENTS/SUBSTANCES) [Concomitant]
  5. CYCLOPHOSPHAMIDE [Concomitant]
  6. FLUDARABINE PHOSPHATE [Concomitant]

REACTIONS (3)
  - BASAL CELL CARCINOMA [None]
  - DRUG INEFFECTIVE [None]
  - GRAFT VERSUS HOST DISEASE [None]
